FAERS Safety Report 12298956 (Version 1)
Quarter: 2016Q2

REPORT INFORMATION
  Report Type: Spontaneous
  Country: US (occurrence: None)
  Receive Date: 20160422
  Receipt Date: 20160422
  Transmission Date: 20160815
  Serious: Yes (Life-Threatening, Hospitalization, Other)
  Sender: FDA-Public Use
  Company Number: None

PATIENT
  Age: 22 Year
  Weight: 81.65 kg

DRUGS (1)
  1. INSULIN [Suspect]
     Active Substance: INSULIN NOS

REACTIONS (5)
  - Diabetic ketoacidosis [None]
  - Blood glucose fluctuation [None]
  - Device leakage [None]
  - Device malfunction [None]
  - Product quality issue [None]

NARRATIVE: CASE EVENT DATE: 20131231
